FAERS Safety Report 5813830-6 (Version None)
Quarter: 2008Q3

REPORT INFORMATION
  Report Type: 
  Country: None (occurrence: None)
  Receive Date: 20080717
  Receipt Date: 20080708
  Transmission Date: 20090109
  Serious: Yes (Hospitalization)
  Sender: FDA-Public Use
  Company Number: BR-ABBOTT-08P-020-0456633-00

PATIENT
  Sex: Male
  Weight: 85.3 kg

DRUGS (3)
  1. RITONAVIR SOFT GELATIN CAPSULES [Suspect]
     Indication: HIV INFECTION
     Route: 048
  2. TMC125 [Concomitant]
     Indication: HIV INFECTION
  3. TMC114 [Concomitant]
     Indication: HIV INFECTION

REACTIONS (1)
  - INTESTINAL POLYP [None]
